FAERS Safety Report 15210066 (Version 1)
Quarter: 2018Q3

REPORT INFORMATION
  Report Type: Spontaneous
  Country: US (occurrence: US)
  Receive Date: 20180727
  Receipt Date: 20180727
  Transmission Date: 20181010
  Serious: Yes (Other)
  Sender: FDA-Public Use
  Company Number: US-PFIZER INC-2018297751

PATIENT
  Age: 11 Year
  Sex: Male
  Weight: 30.9 kg

DRUGS (19)
  1. MIDAZOLAM [Interacting]
     Active Substance: MIDAZOLAM HYDROCHLORIDE
     Indication: ANAESTHESIA
     Dosage: UNK
     Route: 042
     Dates: start: 20180523, end: 20180523
  2. BANZEL [Interacting]
     Active Substance: RUFINAMIDE
     Indication: LENNOX-GASTAUT SYNDROME
     Dosage: 700 MG, DAILY [500MG IN AM AND 200MG IN PM]
     Route: 048
     Dates: start: 20180525, end: 20180525
  3. DEPAKOTE [Concomitant]
     Active Substance: DIVALPROEX SODIUM
     Indication: LENNOX-GASTAUT SYNDROME
  4. ANCEF [Concomitant]
     Active Substance: CEFAZOLIN SODIUM
     Dosage: UNK
     Route: 042
     Dates: start: 20180523, end: 20180523
  5. ONFI [Concomitant]
     Active Substance: CLOBAZAM
     Indication: LENNOX-GASTAUT SYNDROME
  6. FENTANYL CITRATE. [Suspect]
     Active Substance: FENTANYL CITRATE
     Indication: ANAESTHESIA
     Dosage: UNK
     Route: 042
     Dates: start: 20180523, end: 20180523
  7. BANZEL [Interacting]
     Active Substance: RUFINAMIDE
     Dosage: 600 MG, DAILY [400MG IN AM AND 200MG IN PM]
     Route: 048
     Dates: start: 20180531, end: 20180531
  8. AMOXICILLIN. [Concomitant]
     Active Substance: AMOXICILLIN
     Indication: INFECTION PROPHYLAXIS
     Dosage: UNK
     Dates: start: 201805
  9. FELBAMATE. [Concomitant]
     Active Substance: FELBAMATE
     Indication: EPILEPSY
     Dosage: 1400 MG, DAILY [600MG IN AM AND 800MG IN PM]
  10. PROPOFOL. [Interacting]
     Active Substance: PROPOFOL
     Indication: ANAESTHESIA
     Dosage: UNK
     Route: 042
     Dates: start: 20180523, end: 20180523
  11. BANZEL [Interacting]
     Active Substance: RUFINAMIDE
     Dosage: 200 MG, 2X/DAY  [200MG, 2 IN 1 D]
     Route: 048
     Dates: start: 20180607
  12. DEPAKOTE [Concomitant]
     Active Substance: DIVALPROEX SODIUM
     Indication: EPILEPSY
     Dosage: 187.5 MG, DAILY [62.5MG IN AM AND 125MG IN PM]
  13. BANZEL [Interacting]
     Active Substance: RUFINAMIDE
     Dosage: 300 MG, 2X/DAY [300MG 2 IN 1 D]
     Route: 048
     Dates: start: 20180601, end: 20180606
  14. DECADRON [Concomitant]
     Active Substance: DEXAMETHASONE
     Dosage: UNK
     Route: 042
     Dates: start: 20180523, end: 20180523
  15. BANZEL [Interacting]
     Active Substance: RUFINAMIDE
     Indication: EPILEPSY
     Dosage: 500 MG, 2X/DAY
     Route: 048
     Dates: start: 201303, end: 20180524
  16. BANZEL [Interacting]
     Active Substance: RUFINAMIDE
     Dosage: 300 MG, 2X/DAY  [300MG, 2 IN 1 D]
     Route: 048
     Dates: start: 20180526, end: 20180529
  17. BANZEL [Interacting]
     Active Substance: RUFINAMIDE
     Dosage: 700 MG, DAILY [400MG IN AM AND 300MG IN PM]
     Route: 048
     Dates: start: 20180530, end: 20180530
  18. ONFI [Concomitant]
     Active Substance: CLOBAZAM
     Indication: EPILEPSY
     Dosage: 17.5 MG, DAILY [2.5MG IN AM AND 15MG IN PM]
  19. FELBAMATE. [Concomitant]
     Active Substance: FELBAMATE
     Indication: LENNOX-GASTAUT SYNDROME

REACTIONS (9)
  - Weight decreased [Unknown]
  - Anticonvulsant drug level increased [Not Recovered/Not Resolved]
  - Drug interaction [Unknown]
  - Impaired gastric emptying [Recovering/Resolving]
  - Decreased appetite [Recovering/Resolving]
  - Lethargy [Unknown]
  - Retching [Recovering/Resolving]
  - Vomiting [Recovering/Resolving]
  - Dehydration [Recovering/Resolving]

NARRATIVE: CASE EVENT DATE: 20180523
